FAERS Safety Report 5047637-7 (Version None)
Quarter: 2006Q2

REPORT INFORMATION
  Report Type: 
  Country: None (occurrence: None)
  Receive Date: 20060601
  Receipt Date: 20051202
  Transmission Date: 20061013
  Serious: No
  Sender: FDA-Public Use
  Company Number: US200602001863

PATIENT
  Sex: Female

DRUGS (1)
  1. CYMBALTA [Suspect]
     Dosage: ORAL
     Route: 048
     Dates: start: 20051015

REACTIONS (6)
  - AFFECT LABILITY [None]
  - DRUG INEFFECTIVE [None]
  - DYSPEPSIA [None]
  - MIDDLE INSOMNIA [None]
  - SOMNOLENCE [None]
  - STOMACH DISCOMFORT [None]
